FAERS Safety Report 7141383-1 (Version None)
Quarter: 2010Q4

REPORT INFORMATION
  Report Type: 
  Country: None (occurrence: None)
  Receive Date: 20101203
  Receipt Date: 20101203
  Transmission Date: 20110411
  Serious: Yes (Death, Life-Threatening, Hospitalization, Other)
  Sender: FDA-Public Use
  Company Number: None

PATIENT
  Sex: Female

DRUGS (2)
  1. CLOFARABINE 1MG/ML - GENZYME [Suspect]
     Indication: ACUTE MYELOID LEUKAEMIA RECURRENT
     Dosage: 55MG QD IV
     Route: 042
     Dates: start: 20100929, end: 20101003
  2. .. [Concomitant]

REACTIONS (9)
  - COAGULOPATHY [None]
  - DIALYSIS [None]
  - FEBRILE NEUTROPENIA [None]
  - HYPOTENSION [None]
  - INFECTION [None]
  - RENAL FAILURE [None]
  - RESPIRATORY FAILURE [None]
  - TRANSAMINASES INCREASED [None]
  - VENTRICULAR DYSFUNCTION [None]
